FAERS Safety Report 18647934 (Version 1)
Quarter: 2020Q4

REPORT INFORMATION
  Report Type: Spontaneous
  Country: FR (occurrence: FR)
  Receive Date: 20201222
  Receipt Date: 20201222
  Transmission Date: 20210114
  Serious: Yes (Life-Threatening)
  Sender: FDA-Public Use
  Company Number: FR-ACCORD-211806

PATIENT
  Age: 72 Year
  Sex: Male

DRUGS (9)
  1. CALCIPARINE [Suspect]
     Active Substance: HEPARIN CALCIUM
     Indication: ATRIAL FIBRILLATION
     Dosage: STRENGTH: 12,500 IU / 0.5 ML
     Route: 058
     Dates: end: 20190202
  2. APIDRA [Concomitant]
     Active Substance: INSULIN GLULISINE
  3. FUROSEMIDE. [Suspect]
     Active Substance: FUROSEMIDE
     Indication: PRODUCT USED FOR UNKNOWN INDICATION
     Route: 048
     Dates: end: 20190202
  4. ATORVASTATIN [Concomitant]
     Active Substance: ATORVASTATIN
  5. MOPRAL [Concomitant]
     Active Substance: OMEPRAZOLE
  6. BISOCE [Suspect]
     Active Substance: BISOPROLOL
     Indication: HYPERTENSION
     Dosage: STRENGTH: 5 MG
     Route: 048
     Dates: end: 20190202
  7. VALSARTAN. [Suspect]
     Active Substance: VALSARTAN
     Indication: HYPERTENSION
     Route: 048
     Dates: end: 20190202
  8. PARACETAMOL [Concomitant]
     Active Substance: ACETAMINOPHEN
  9. LEVEMIR [Concomitant]
     Active Substance: INSULIN DETEMIR

REACTIONS (3)
  - Anaemia [Recovered/Resolved with Sequelae]
  - Shock haemorrhagic [Recovered/Resolved]
  - Melaena [Recovered/Resolved]

NARRATIVE: CASE EVENT DATE: 20190202
